FAERS Safety Report 19473156 (Version 1)
Quarter: 2021Q2

REPORT INFORMATION
  Report Type: Spontaneous
  Country: US (occurrence: US)
  Receive Date: 20210629
  Receipt Date: 20210629
  Transmission Date: 20210717
  Serious: No
  Sender: FDA-Public Use
  Company Number: US-DRREDDYS-SPO/USA/21/0136826

PATIENT
  Sex: Female

DRUGS (1)
  1. SUMATRIPTAN INJECTION [Suspect]
     Active Substance: SUMATRIPTAN
     Indication: MIGRAINE
     Dosage: 6MG/0.5ML

REACTIONS (3)
  - Product dose omission issue [Unknown]
  - Injection site haemorrhage [Unknown]
  - Product quality issue [Unknown]
